FAERS Safety Report 19042579 (Version 1)
Quarter: 2021Q1

REPORT INFORMATION
  Report Type: Spontaneous
  Country: US (occurrence: US)
  Receive Date: 20210322
  Receipt Date: 20210322
  Transmission Date: 20210420
  Serious: Yes (Disabling)
  Sender: FDA-Public Use
  Company Number: None

PATIENT
  Age: 29 Year
  Sex: Female
  Weight: 55.35 kg

DRUGS (1)
  1. MIRENA [Suspect]
     Active Substance: LEVONORGESTREL
     Indication: CONTRACEPTION
     Dates: start: 20191025, end: 20210122

REACTIONS (5)
  - Complication associated with device [None]
  - Gait disturbance [None]
  - Arthralgia [None]
  - Groin pain [None]
  - Pain in extremity [None]

NARRATIVE: CASE EVENT DATE: 20200504
